FAERS Safety Report 19934351 (Version 2)
Quarter: 2021Q4

REPORT INFORMATION
  Report Type: Spontaneous
  Country: BR (occurrence: BR)
  Receive Date: 20211008
  Receipt Date: 20211116
  Transmission Date: 20220303
  Serious: No
  Sender: FDA-Public Use
  Company Number: BR-JNJFOC-20210954265

PATIENT
  Age: 49 Year
  Sex: Female

DRUGS (5)
  1. FENTANYL [Suspect]
     Active Substance: FENTANYL
     Indication: Pain
     Dosage: 50.00 MCG/ HR
     Route: 062
     Dates: start: 2013
  2. FENTANYL [Suspect]
     Active Substance: FENTANYL
  3. FENTANYL [Suspect]
     Active Substance: FENTANYL
  4. MORPHINE [Concomitant]
     Active Substance: MORPHINE
     Indication: Pain
     Route: 065
  5. FENTANYL [Concomitant]
     Active Substance: FENTANYL
     Indication: Pain
     Route: 065

REACTIONS (7)
  - Application site erythema [Unknown]
  - Pain [Unknown]
  - Product quality issue [Unknown]
  - Product adhesion issue [Unknown]
  - Product dose omission issue [Unknown]
  - Gait inability [Unknown]
  - Movement disorder [Unknown]

NARRATIVE: CASE EVENT DATE: 20210901
